FAERS Safety Report 4368349-9 (Version None)
Quarter: 2004Q2

REPORT INFORMATION
  Report Type: 
  Country: None (occurrence: None)
  Receive Date: 20040525
  Receipt Date: 20040510
  Transmission Date: 20050107
  Serious: Yes (Death, Hospitalization)
  Sender: FDA-Public Use
  Company Number: L04-NZL-02282-02

PATIENT
  Age: 73 Year
  Sex: Female

DRUGS (12)
  1. DILTIAZEM [Suspect]
     Dosage: 120 MG BID PO
     Route: 048
  2. SIMVASTATIN [Suspect]
     Dosage: 40 MG QD
  3. SIMVASTATIN [Suspect]
     Dosage: 20 MG QD
  4. ASPIRIN COMPOUND [Concomitant]
  5. ISOSORBIDE MONONITRATE [Concomitant]
  6. CILAZAPRIL [Concomitant]
  7. METOPROLOL TARTRATE [Concomitant]
  8. FUROSEMIDE [Concomitant]
  9. METFORMIN [Concomitant]
  10. OMEPRAZOLE [Concomitant]
  11. INSULIN [Concomitant]
  12. AMITRIPTYLINE HCL [Concomitant]

REACTIONS (5)
  - ASTHENIA [None]
  - DRUG INTERACTION [None]
  - MYALGIA [None]
  - RENAL IMPAIRMENT [None]
  - RHABDOMYOLYSIS [None]
